FAERS Safety Report 19123063 (Version 4)
Quarter: 2023Q2

REPORT INFORMATION
  Report Type: Report from Study
  Country: AT (occurrence: AT)
  Receive Date: 20210412
  Receipt Date: 20230502
  Transmission Date: 20230721
  Serious: Yes (Other)
  Sender: FDA-Public Use
  Company Number: AT-SA-2019SA322972

PATIENT
  Age: 38 Year
  Sex: Male

DRUGS (1)
  1. ALEMTUZUMAB [Suspect]
     Active Substance: ALEMTUZUMAB
     Indication: Multiple sclerosis
     Dosage: UNK
     Route: 041

REACTIONS (4)
  - Hypothyroidism [Not Recovered/Not Resolved]
  - Autoimmune thyroid disorder [Not Recovered/Not Resolved]
  - Autoimmune thyroiditis [Unknown]
  - Herpes zoster [Not Recovered/Not Resolved]

NARRATIVE: CASE EVENT DATE: 20190919
